FAERS Safety Report 5728653-6 (Version None)
Quarter: 2008Q2

REPORT INFORMATION
  Report Type: 
  Country: None (occurrence: None)
  Receive Date: 20080502
  Receipt Date: 20080502
  Transmission Date: 20081010
  Serious: Yes (Disabling, Other)
  Sender: FDA-Public Use
  Company Number: None

PATIENT
  Age: 40 Year
  Sex: Male
  Weight: 133.8111 kg

DRUGS (1)
  1. DIGITEK 0.125 MICRO-GRAM BERTEK AND UDL LABORATORIES [Suspect]
     Indication: ATRIAL FIBRILLATION
     Dosage: 0.250 MG ONCE A DAY PO
     Route: 048
     Dates: start: 19950605, end: 20080501

REACTIONS (14)
  - CARDIAC DISORDER [None]
  - CHROMATOPSIA [None]
  - CONFUSIONAL STATE [None]
  - DEPRESSED LEVEL OF CONSCIOUSNESS [None]
  - DIZZINESS [None]
  - DYSPNOEA [None]
  - HALO VISION [None]
  - HEART RATE IRREGULAR [None]
  - HYPOTENSION [None]
  - PALPITATIONS [None]
  - PHOTOPSIA [None]
  - VISION BLURRED [None]
  - VISUAL DISTURBANCE [None]
  - VISUAL FIELD DEFECT [None]
